FAERS Safety Report 19058608 (Version 1)
Quarter: 2021Q1

REPORT INFORMATION
  Report Type: Spontaneous
  Country: CA (occurrence: CA)
  Receive Date: 20210325
  Receipt Date: 20210325
  Transmission Date: 20210420
  Serious: Yes (Other)
  Sender: FDA-Public Use
  Company Number: NVSC2021CA067567

PATIENT
  Age: 36 Year

DRUGS (2)
  1. TESTOSTERONE. [Suspect]
     Active Substance: TESTOSTERONE
     Indication: HORMONE THERAPY
     Dosage: UNK, UNKNOWN (INJECTABLE)
     Route: 065
  2. TESTOSTERONE. [Suspect]
     Active Substance: TESTOSTERONE
     Indication: HORMONE THERAPY
     Dosage: UNK, UNKNOWN (1 PERCENT TESTOSTERONE GEL)
     Route: 062

REACTIONS (1)
  - Endometrial adenocarcinoma [Unknown]
